FAERS Safety Report 6984423-2 (Version None)
Quarter: 2010Q3

REPORT INFORMATION
  Report Type: 
  Country: None (occurrence: None)
  Receive Date: 20100915
  Receipt Date: 20100901
  Transmission Date: 20110219
  Serious: Yes (Other)
  Sender: FDA-Public Use
  Company Number: US-ELI_LILLY_AND_COMPANY-US201009003207

PATIENT
  Age: 74 Year
  Sex: Male

DRUGS (2)
  1. CIALIS [Suspect]
     Indication: ERECTILE DYSFUNCTION
     Dosage: 20 MG, AS NEEDED
     Route: 065
  2. CIALIS [Suspect]
     Dosage: 20 MG, AS NEEDED
     Route: 065
     Dates: start: 20090501

REACTIONS (6)
  - CHONDROPATHY [None]
  - EYE DISORDER [None]
  - GLAUCOMA [None]
  - INTERVERTEBRAL DISC DEGENERATION [None]
  - INTRAOCULAR PRESSURE TEST ABNORMAL [None]
  - PAIN [None]
